FAERS Safety Report 7706823-5 (Version None)
Quarter: 2011Q3

REPORT INFORMATION
  Report Type: 
  Country: None (occurrence: None)
  Receive Date: 20110818
  Receipt Date: 20110811
  Transmission Date: 20111222
  Serious: Yes (Death)
  Sender: FDA-Public Use
  Company Number: 2011SP021859

PATIENT
  Age: 18 Year
  Sex: Female
  Weight: 54 kg

DRUGS (6)
  1. NEXPLANON [Suspect]
     Indication: CONTRACEPTION
     Dosage: SBDE
     Route: 059
     Dates: start: 20110309
  2. HYDROXYCHLOROQUINE [Concomitant]
  3. OMEPRAZOLE [Concomitant]
  4. DICLOFENAC SODIUM [Concomitant]
  5. NIFEDIPINE [Concomitant]
  6. DEPONIT [Concomitant]

REACTIONS (7)
  - ARTERY DISSECTION [None]
  - BRAIN HERNIATION [None]
  - CEREBRAL INFARCTION [None]
  - INTERSTITIAL LUNG DISEASE [None]
  - BRAIN OEDEMA [None]
  - OVERDOSE [None]
  - DIFFUSE ALVEOLAR DAMAGE [None]
